FAERS Safety Report 21308465 (Version 3)
Quarter: 2022Q4

REPORT INFORMATION
  Report Type: Spontaneous
  Country: JP (occurrence: JP)
  Receive Date: 20220908
  Receipt Date: 20221111
  Transmission Date: 20230113
  Serious: Yes (Hospitalization)
  Sender: FDA-Public Use
  Company Number: JP-ELI_LILLY_AND_COMPANY-JP202209000554

PATIENT
  Age: 15 Year
  Sex: Female
  Weight: 38.1 kg

DRUGS (5)
  1. TADALAFIL [Suspect]
     Active Substance: TADALAFIL
     Indication: Pulmonary arteriovenous fistula
     Dosage: 40 MG, DAILY
     Route: 048
     Dates: start: 20120128, end: 20191213
  2. AMBRISENTAN [Suspect]
     Active Substance: AMBRISENTAN
     Indication: Pulmonary arteriovenous fistula
     Dosage: UNK, UNKNOWN
     Route: 048
     Dates: start: 20130928, end: 20191218
  3. ENALAPRIL [Suspect]
     Active Substance: ENALAPRIL
     Indication: Univentricular heart
     Dosage: 3.75 MG, DAILY
     Route: 048
     Dates: start: 20100910, end: 20201226
  4. PIMOBENDAN [Suspect]
     Active Substance: PIMOBENDAN
     Indication: Univentricular heart
     Dosage: 2.5 MG, DAILY
     Route: 048
     Dates: start: 20190304, end: 20210204
  5. CARVEDILOL [Suspect]
     Active Substance: CARVEDILOL
     Indication: Univentricular heart
     Dosage: 10 MG, DAILY
     Route: 048

REACTIONS (10)
  - Oedema [Recovered/Resolved]
  - Cardiac output increased [Recovering/Resolving]
  - Anaemia [Unknown]
  - Splenic injury [Unknown]
  - Ovarian haemorrhage [Unknown]
  - Peritonitis [Unknown]
  - Abdominal pain upper [Unknown]
  - Weight increased [Unknown]
  - Ascites [Unknown]
  - Abdominal distension [Unknown]

NARRATIVE: CASE EVENT DATE: 20190801
